FAERS Safety Report 6331943-X (Version None)
Quarter: 2009Q3

REPORT INFORMATION
  Report Type: 
  Country: None (occurrence: None)
  Receive Date: 20090828
  Receipt Date: 20070807
  Transmission Date: 20100115
  Serious: Yes (Other)
  Sender: FDA-Public Use
  Company Number: US-ASTRAZENECA-2006UW27738

PATIENT
  Age: 590 Month
  Sex: Male
  Weight: 120.2 kg

DRUGS (20)
  1. SEROQUEL [Suspect]
     Indication: SCHIZOPHRENIA
     Route: 048
     Dates: start: 20040701, end: 20070107
  2. SEROQUEL [Suspect]
     Indication: BIPOLAR DISORDER
     Route: 048
     Dates: start: 20040701, end: 20070107
  3. SEROQUEL [Suspect]
     Indication: DEPRESSION
     Route: 048
     Dates: start: 20040701, end: 20070107
  4. SEROQUEL [Suspect]
     Dosage: 40 - 400 MG DAILY
     Route: 048
     Dates: start: 20040805
  5. SEROQUEL [Suspect]
     Dosage: 40 - 400 MG DAILY
     Route: 048
     Dates: start: 20040805
  6. SEROQUEL [Suspect]
     Dosage: 40 - 400 MG DAILY
     Route: 048
     Dates: start: 20040805
  7. ZYPREXA [Concomitant]
     Dates: start: 20050101
  8. WELLBUTRIN [Concomitant]
     Dates: start: 20020101
  9. WELLBUTRIN [Concomitant]
     Dates: start: 20010127
  10. ZOLOFT [Concomitant]
     Dosage: 100 - 200 MG DAILY
     Dates: start: 19971211
  11. TRAZODONE HCL [Concomitant]
     Dosage: 100 - 200 MG DAILY
     Dates: start: 20030331
  12. CLONAZEPAM [Concomitant]
     Indication: ANXIETY
     Dates: start: 20040805
  13. LASIX [Concomitant]
     Dosage: 80 - 240 MG DAILY
     Dates: start: 20030331
  14. METOPROLOL [Concomitant]
     Dates: start: 20030331
  15. ATIVAN [Concomitant]
     Dates: start: 20010127
  16. VALPROIC ACID [Concomitant]
     Dates: start: 20060316
  17. LISINOPRIL [Concomitant]
     Dates: start: 20060418
  18. ROSUVASTATIN [Concomitant]
     Dates: start: 20060418
  19. ALPRAZOLAM [Concomitant]
     Dosage: 1 - 4 MG DAILY
     Dates: start: 20030331
  20. CELEBREX [Concomitant]
     Dates: start: 20030331

REACTIONS (8)
  - DIABETES MELLITUS [None]
  - DIABETIC EYE DISEASE [None]
  - DIABETIC NEPHROPATHY [None]
  - DIABETIC RETINOPATHY [None]
  - PERICARDIAL EFFUSION [None]
  - PICKWICKIAN SYNDROME [None]
  - TYPE 2 DIABETES MELLITUS [None]
  - WEIGHT INCREASED [None]
